FAERS Safety Report 18654681 (Version 1)
Quarter: 2020Q4

REPORT INFORMATION
  Report Type: Report from Study
  Country: None (occurrence: US)
  Receive Date: 20201223
  Receipt Date: 20201223
  Transmission Date: 20210114
  Serious: Yes (Other)
  Sender: FDA-Public Use
  Company Number: US-ABBVIE-20K-163-3698039-00

PATIENT
  Sex: Female

DRUGS (1)
  1. HUMIRA [Suspect]
     Active Substance: ADALIMUMAB
     Indication: RHEUMATOID ARTHRITIS
     Route: 058

REACTIONS (6)
  - Respiratory syncytial virus infection [Unknown]
  - Dry eye [Recovered/Resolved]
  - Systemic lupus erythematosus [Recovered/Resolved]
  - Connective tissue disorder [Recovered/Resolved]
  - Dry mouth [Recovered/Resolved]
  - Rash [Recovered/Resolved]
